FAERS Safety Report 16468763 (Version 2)
Quarter: 2019Q2

REPORT INFORMATION
  Report Type: Spontaneous
  Country: MY (occurrence: MY)
  Receive Date: 20190624
  Receipt Date: 20190627
  Transmission Date: 20190711
  Serious: Yes (Hospitalization)
  Sender: FDA-Public Use
  Company Number: MY-PFIZER INC-2019263352

PATIENT
  Age: 26 Year
  Sex: Male

DRUGS (1)
  1. DBL ACETYLCYSTEINE [Suspect]
     Active Substance: ACETYLCYSTEINE
     Indication: LIVER INJURY
     Dosage: 10.5 G, ALTERNATE DAY
     Route: 042

REACTIONS (5)
  - Product use in unapproved indication [Unknown]
  - Nausea [Recovered/Resolved]
  - Off label use [Unknown]
  - Pruritus [Recovered/Resolved]
  - Chest pain [Recovered/Resolved]
